FAERS Safety Report 5942779-3 (Version None)
Quarter: 2008Q4

REPORT INFORMATION
  Report Type: 
  Country: None (occurrence: None)
  Receive Date: 20081106
  Receipt Date: 20081028
  Transmission Date: 20090506
  Serious: Yes (Death)
  Sender: FDA-Public Use
  Company Number: US-JNJFOC-20081006967

PATIENT
  Sex: Male
  Weight: 108.86 kg

DRUGS (7)
  1. FENTANYL TRANSDERMAL SYSTEM [Suspect]
     Indication: DRUG USE FOR UNKNOWN INDICATION
  2. OXYCODONE HCL [Concomitant]
  3. ALPRAZOLAM [Concomitant]
  4. DIAZEPAM [Concomitant]
  5. SOMA [Concomitant]
  6. MILTOWN [Concomitant]
  7. ATROPINE [Concomitant]

REACTIONS (2)
  - INTENTIONAL DRUG MISUSE [None]
  - NARCOTIC INTOXICATION [None]
